FAERS Safety Report 5602825-3 (Version None)
Quarter: 2008Q1

REPORT INFORMATION
  Report Type: 
  Country: None (occurrence: None)
  Receive Date: 20080125
  Receipt Date: 20080118
  Transmission Date: 20080703
  Serious: Yes (Disabling)
  Sender: FDA-Public Use
  Company Number: CA-WYE-G00922108

PATIENT
  Sex: Female

DRUGS (4)
  1. EFFEXOR XR [Suspect]
     Indication: DEPRESSION
     Route: 048
     Dates: start: 19990401, end: 19990101
  2. EFFEXOR XR [Suspect]
     Route: 048
     Dates: start: 19990101
  3. EFFEXOR XR [Suspect]
     Route: 048
  4. WELLBUTRIN [Concomitant]
     Route: 048
     Dates: start: 19990101

REACTIONS (4)
  - BLOOD PRESSURE INCREASED [None]
  - MALAISE [None]
  - PARAESTHESIA [None]
  - WITHDRAWAL SYNDROME [None]
